FAERS Safety Report 8905263 (Version 1)
Quarter: 2012Q4

REPORT INFORMATION
  Report Type: 
  Country: US (occurrence: US)
  Receive Date: 20121112
  Receipt Date: 20121112
  Transmission Date: 20130627
  Serious: Yes (Hospitalization)
  Sender: FDA-Public Use
  Company Number: PHEH2012US021987

PATIENT
  Sex: Female

DRUGS (5)
  1. DIOVAN [Suspect]
     Dosage: 160 mg, BID
     Route: 048
  2. COREG [Concomitant]
  3. INSULIN [Concomitant]
  4. LASIX [Concomitant]
  5. PROCRIT//EPOETIN ALFA [Concomitant]

REACTIONS (2)
  - Cardiac failure congestive [Unknown]
  - Fluid retention [Unknown]
